FAERS Safety Report 8366069-7 (Version None)
Quarter: 2012Q2

REPORT INFORMATION
  Report Type: 
  Country: None (occurrence: None)
  Receive Date: 20120516
  Receipt Date: 20120516
  Transmission Date: 20120825
  Serious: Yes (Other)
  Sender: FDA-Public Use
  Company Number: None

PATIENT
  Age: 69 Year
  Sex: Female
  Weight: 90.7194 kg

DRUGS (1)
  1. CIPROFLOXACIN HCL [Suspect]
     Dosage: 500 MG 2X DAILY ORAL (TABLET)
     Route: 048

REACTIONS (3)
  - SWELLING FACE [None]
  - LOCAL SWELLING [None]
  - TENDON RUPTURE [None]
